FAERS Safety Report 26079851 (Version 3)
Quarter: 2025Q4

REPORT INFORMATION
  Report Type: Report from Study
  Country: US (occurrence: US)
  Receive Date: 20251123
  Receipt Date: 20251214
  Transmission Date: 20260117
  Serious: Yes (Other)
  Sender: ABBVIE
  Company Number: US-ABBVIE-6556880

PATIENT
  Age: 69 Year
  Sex: Male

DRUGS (3)
  1. VENCLEXTA [Suspect]
     Active Substance: VENETOCLAX
     Indication: Myelodysplastic syndrome
     Dosage: FOR DAYS 1-14 OF A 28 DAY CYCLE., LAST ADMIN: 2025
     Route: 048
     Dates: start: 20251030
  2. VENCLEXTA [Suspect]
     Active Substance: VENETOCLAX
     Indication: Myelodysplastic syndrome
     Dosage: DOSE - 400MG DAILY FOR DAYS 1-14 OF A 28 DAY CYCLE, FIRST ADMIN: 2025,
     Route: 048
     Dates: start: 2025
  3. OZEMPIC [Concomitant]
     Active Substance: SEMAGLUTIDE
     Indication: Product used for unknown indication
     Dosage: CAT C INTERACTION PER LEXICOMP
     Route: 058

REACTIONS (7)
  - White blood cell count decreased [Not Recovered/Not Resolved]
  - Head discomfort [Unknown]
  - Haemoglobin decreased [Not Recovered/Not Resolved]
  - Gastrointestinal motility disorder [Not Recovered/Not Resolved]
  - Red blood cell count decreased [Not Recovered/Not Resolved]
  - Dyspepsia [Unknown]
  - Constipation [Not Recovered/Not Resolved]

NARRATIVE: CASE EVENT DATE: 20250101
